FAERS Safety Report 8182310-8 (Version None)
Quarter: 2012Q1

REPORT INFORMATION
  Report Type: 
  Country: None (occurrence: None)
  Receive Date: 20120302
  Receipt Date: 20120227
  Transmission Date: 20120608
  Serious: Yes (Death)
  Sender: FDA-Public Use
  Company Number: PHHY2012ML015337

PATIENT
  Sex: Female
  Weight: 50 kg

DRUGS (1)
  1. GLEEVEC [Suspect]
     Indication: CHRONIC MYELOID LEUKAEMIA
     Dosage: 600 MG, DAILY
     Route: 048

REACTIONS (7)
  - PYREXIA [None]
  - PLATELET COUNT DECREASED [None]
  - HEADACHE [None]
  - HAEMOGLOBIN DECREASED [None]
  - COMA [None]
  - WHITE BLOOD CELL COUNT INCREASED [None]
  - VOMITING [None]
